FAERS Safety Report 20102799 (Version 2)
Quarter: 2022Q4

REPORT INFORMATION
  Report Type: Spontaneous
  Country: US (occurrence: US)
  Receive Date: 20211123
  Receipt Date: 20221212
  Transmission Date: 20230113
  Serious: Yes (Other)
  Sender: FDA-Public Use
  Company Number: US-PFIZER INC-202101565009

PATIENT
  Age: 74 Year
  Sex: Male

DRUGS (1)
  1. VYNDAMAX [Suspect]
     Active Substance: TAFAMIDIS
     Dosage: 61 MG

REACTIONS (13)
  - Atrial fibrillation [Unknown]
  - Arteriosclerosis coronary artery [Unknown]
  - Nephrolithiasis [Unknown]
  - Post procedural complication circulatory [Unknown]
  - Greater trochanteric pain syndrome [Unknown]
  - Coronary artery disease [Unknown]
  - Arthralgia [Unknown]
  - Aortic dilatation [Unknown]
  - Essential hypertension [Unknown]
  - Dizziness [Unknown]
  - Carpal tunnel syndrome [Unknown]
  - Type IIa hyperlipidaemia [Unknown]
  - Chest pain [Unknown]
